FAERS Safety Report 17903482 (Version 1)
Quarter: 2020Q2

REPORT INFORMATION
  Report Type: Spontaneous
  Country: TR (occurrence: TR)
  Receive Date: 20200616
  Receipt Date: 20200616
  Transmission Date: 20200714
  Serious: No
  Sender: FDA-Public Use
  Company Number: TR-TOLMAR, INC.-20TR020190

PATIENT
  Age: 86 Year
  Sex: Male
  Weight: 75 kg

DRUGS (1)
  1. ELIGARD [Suspect]
     Active Substance: LEUPROLIDE ACETATE
     Indication: PROSTATE CANCER
     Dosage: 45 MG, Q 6 MONTH
     Route: 058
     Dates: start: 20190722

REACTIONS (2)
  - Intercepted product preparation error [None]
  - Product leakage [None]

NARRATIVE: CASE EVENT DATE: 20200121
